FAERS Safety Report 7220013-4 (Version None)
Quarter: 2011Q1

REPORT INFORMATION
  Report Type: 
  Country: None (occurrence: None)
  Receive Date: 20110111
  Receipt Date: 20091221
  Transmission Date: 20110831
  Serious: Yes (Other)
  Sender: FDA-Public Use
  Company Number: US-PFIZER INC-2009315889

PATIENT
  Sex: Female

DRUGS (4)
  1. HYDROCHLOROTHIAZIDE [Concomitant]
  2. ATENOLOL [Suspect]
     Dosage: 25 MG, UNK
  3. ZESTRIL [Suspect]
     Dosage: 5 MG, UNK
  4. ACETYLSALICYLIC ACID [Concomitant]

REACTIONS (4)
  - ASTHENIA [None]
  - LOSS OF CONSCIOUSNESS [None]
  - HOT FLUSH [None]
  - DIZZINESS [None]
